FAERS Safety Report 7243037-X (Version None)
Quarter: 2011Q1

REPORT INFORMATION
  Report Type: 
  Country: None (occurrence: None)
  Receive Date: 20110125
  Receipt Date: 20101005
  Transmission Date: 20110831
  Serious: Yes (Hospitalization, Other)
  Sender: FDA-Public Use
  Company Number: US-AMGEN-KDL443309

PATIENT
  Sex: Female

DRUGS (2)
  1. CALCIUM SUPPLEMENT [Concomitant]
     Dosage: UNK UNK, UNK
  2. PROLIA [Suspect]
     Indication: OSTEOPOROSIS POSTMENOPAUSAL
     Dosage: 60 MG, Q6MO
     Dates: start: 20100928

REACTIONS (2)
  - HYPOCALCAEMIA [None]
  - INSOMNIA [None]
